FAERS Safety Report 15101136 (Version 2)
Quarter: 2018Q3

REPORT INFORMATION
  Report Type: Report from Study
  Country: CA (occurrence: CA)
  Receive Date: 20180703
  Receipt Date: 20180820
  Transmission Date: 20181010
  Serious: Yes (Death, Hospitalization, Other)
  Sender: FDA-Public Use
  Company Number: PHHY2013CA019694

PATIENT
  Age: 48 Year
  Sex: Male

DRUGS (3)
  1. SANDOSTATIN LAR DEPOT [Suspect]
     Active Substance: OCTREOTIDE ACETATE
     Dosage: 60 MG, QMO
     Route: 030
  2. SANDOSTATIN LAR DEPOT [Suspect]
     Active Substance: OCTREOTIDE ACETATE
     Indication: NEUROENDOCRINE TUMOUR
     Dosage: 30 MG, QMO (EVERY 4 WEEKS)
     Route: 030
     Dates: start: 20110301
  3. AFINITOR [Suspect]
     Active Substance: EVEROLIMUS
     Indication: NEUROENDOCRINE TUMOUR
     Dosage: 10 MG, DAILY
     Route: 048
     Dates: start: 20111215

REACTIONS (6)
  - Dyspnoea [Unknown]
  - Blood glucose decreased [Unknown]
  - Neuroendocrine tumour [Unknown]
  - Drug ineffective [Unknown]
  - Death [Fatal]
  - Malignant neoplasm progression [Unknown]

NARRATIVE: CASE EVENT DATE: 20180621
